FAERS Safety Report 6691394-5 (Version None)
Quarter: 2010Q2

REPORT INFORMATION
  Report Type: 
  Country: None (occurrence: None)
  Receive Date: 20100414
  Receipt Date: 20100215
  Transmission Date: 20101027
  Serious: Yes (Life-Threatening, Other)
  Sender: FDA-Public Use
  Company Number: 10-065

PATIENT
  Age: 58 Year
  Sex: Female

DRUGS (1)
  1. ALEVE [Suspect]
     Indication: NECK PAIN
     Dosage: 220 MG, DAILY, ORAL
     Route: 048
     Dates: start: 20100209

REACTIONS (4)
  - ANXIETY [None]
  - HYPERSENSITIVITY [None]
  - NERVOUSNESS [None]
  - VOMITING [None]
